FAERS Safety Report 5598894-X (Version None)
Quarter: 2008Q1

REPORT INFORMATION
  Report Type: 
  Country: None (occurrence: None)
  Receive Date: 20080122
  Receipt Date: 20080117
  Transmission Date: 20080703
  Serious: Yes (Hospitalization, Other)
  Sender: FDA-Public Use
  Company Number: GB-RANBAXY-2008RR-12657

PATIENT

DRUGS (18)
  1. ZOCOR [Suspect]
     Indication: CARDIOVASCULAR EVENT PROPHYLAXIS
     Dosage: 40 MG, UNK
     Route: 048
     Dates: start: 20040927
  2. ASCORBIC ACID TABLETS BP 100MG [Concomitant]
     Dosage: 500 MG, UNK
     Dates: start: 19980101
  3. ASPIRIN TABLETS BP 300MG [Concomitant]
     Indication: CARDIOVASCULAR EVENT PROPHYLAXIS
     Dosage: 75 MG, UNK
     Dates: start: 20040927
  4. CLOPIDOGREL [Concomitant]
     Indication: CARDIOVASCULAR EVENT PROPHYLAXIS
     Dosage: 75 MG, UNK
     Dates: start: 20040927
  5. GLUCOSAMINE [Concomitant]
     Dosage: 1000 MG, UNK
     Dates: start: 20030101
  6. OMEGA-3 MARINE TRIGLYCERIDES [Concomitant]
     Dosage: 1000 MG, UNK
     Dates: start: 19980101
  7. FUROSEMIDE TABLETS BP 40MG [Concomitant]
     Indication: HYPERTENSION
     Dosage: 40 MG, QD
  8. NICORANDIL [Concomitant]
     Indication: ANGINA PECTORIS
     Dosage: 30 MG, QD
  9. GLYCERYL TRINITRATE [Concomitant]
     Indication: ANGINA PECTORIS
     Dosage: 1 UNK, QD
     Route: 055
  10. LANSOPRAZOLE [Concomitant]
     Indication: PROPHYLAXIS
     Dosage: 15 MG, QD
  11. PARACETAMOL CAPSULES 500MG [Concomitant]
     Indication: HEADACHE
     Dosage: UNK
     Dates: start: 20050101
  12. TILDIEM [Concomitant]
     Indication: ANGINA PECTORIS
     Dosage: 300 MG, UNK
  13. MONOMIL [Concomitant]
     Indication: ANGINA PECTORIS
     Dosage: 60 MG, UNK
     Dates: end: 20070608
  14. MONOMIL [Concomitant]
     Dosage: UNK MG, QD
  15. RAMIPRIL [Concomitant]
     Indication: MYOCARDIAL INFARCTION
  16. CANDESARTAN [Concomitant]
     Indication: PROPHYLAXIS
     Dosage: 4 MG, QD
  17. NAPROXEN [Concomitant]
     Indication: OSTEOARTHRITIS
     Dosage: 500 MG, QD
  18. ISOSORBIDE MONONITRATE [Concomitant]
     Indication: ANGINA PECTORIS
     Dosage: 90 MG, QD

REACTIONS (6)
  - ANGINA PECTORIS [None]
  - BLOOD PRESSURE INCREASED [None]
  - CHEST PAIN [None]
  - DYSPNOEA [None]
  - HEADACHE [None]
  - MYOCARDIAL INFARCTION [None]
